FAERS Safety Report 4914693-3 (Version None)
Quarter: 2006Q1

REPORT INFORMATION
  Report Type: 
  Country: None (occurrence: None)
  Receive Date: 20060216
  Receipt Date: 20060207
  Transmission Date: 20060701
  Serious: Yes (Death, Hospitalization)
  Sender: FDA-Public Use
  Company Number: US-MERCK-0602USA01809

PATIENT
  Age: 30 Year
  Sex: Female
  Weight: 113 kg

DRUGS (6)
  1. VIOXX [Suspect]
     Indication: JOINT INJURY
     Route: 048
     Dates: start: 20030227, end: 20030302
  2. MICROGESTIN FE 1/20 [Concomitant]
     Route: 065
  3. AVANDIA [Concomitant]
     Route: 065
  4. AMARYL [Concomitant]
     Route: 065
  5. GLUCOPHAGE XR [Concomitant]
     Route: 065
  6. ALTACE [Concomitant]
     Route: 065
     Dates: start: 20000101, end: 20030101

REACTIONS (20)
  - ARTERIAL THROMBOSIS [None]
  - BRADYCARDIA [None]
  - BRAIN HERNIATION [None]
  - BRAIN OEDEMA [None]
  - CARDIO-RESPIRATORY ARREST [None]
  - CEREBRAL INFARCTION [None]
  - CEREBROVASCULAR ACCIDENT [None]
  - COAGULOPATHY [None]
  - COMA [None]
  - DYSPNOEA [None]
  - FACIAL PALSY [None]
  - FALL [None]
  - FATIGUE [None]
  - HEMIPARESIS [None]
  - HYPOTENSION [None]
  - HYPOXIA [None]
  - PULMONARY EMBOLISM [None]
  - RESPIRATORY DISTRESS [None]
  - SHOCK [None]
  - THROMBOSIS [None]
